FAERS Safety Report 12067272 (Version 1)
Quarter: 2016Q1

REPORT INFORMATION
  Report Type: Spontaneous
  Country: US (occurrence: US)
  Receive Date: 20160210
  Receipt Date: 20160210
  Transmission Date: 20160526
  Serious: No
  Sender: FDA-Public Use
  Company Number: US-JNJFOC-20160118277

PATIENT
  Sex: Female
  Weight: 68.95 kg

DRUGS (4)
  1. DILAUDID [Concomitant]
     Active Substance: HYDROMORPHONE HYDROCHLORIDE
     Indication: BACK PAIN
     Dosage: SINCE 2011
     Route: 065
  2. MOTRIN IB [Suspect]
     Active Substance: IBUPROFEN
     Route: 048
  3. MOTRIN IB [Suspect]
     Active Substance: IBUPROFEN
     Indication: NEURALGIA
     Dosage: EVERY 1-2 DAYS
     Route: 048
  4. LYRICA [Suspect]
     Active Substance: PREGABALIN
     Indication: PRODUCT USED FOR UNKNOWN INDICATION
     Route: 065
     Dates: start: 2013, end: 201601

REACTIONS (8)
  - Drug administration error [Recovering/Resolving]
  - Product use issue [Recovering/Resolving]
  - Rash [Recovering/Resolving]
  - Swelling [Recovering/Resolving]
  - Erythema [Recovering/Resolving]
  - Insomnia [Recovering/Resolving]
  - Aggression [Recovering/Resolving]
  - Off label use [Recovering/Resolving]
